FAERS Safety Report 10064084 (Version 1)
Quarter: 2013Q2

REPORT INFORMATION
  Report Type: Spontaneous
  Country: IT (occurrence: None)
  Receive Date: 20121109
  Receipt Date: 20121109
  Transmission Date: 20140414
  Serious: Yes (Death)
  Sender: FDA-Public Use
  Company Number: 2012S1000379

PATIENT
  Age: 82 Year
  Sex: Male

DRUGS (1)
  1. CUBICIN (DAPTOMYCIN) [Suspect]
     Indication: ENDOCARDITIS STAPHYLOCOCCAL

REACTIONS (1)
  - Pulmonary embolism [None]
